FAERS Safety Report 9468783 (Version 5)
Quarter: 2014Q3

REPORT INFORMATION
  Report Type: Spontaneous
  Country: US (occurrence: US)
  Receive Date: 20130821
  Receipt Date: 20140728
  Transmission Date: 20150326
  Serious: Yes (Hospitalization, Other)
  Sender: FDA-Public Use
  Company Number: US-009507513-1308USA008360

PATIENT
  Sex: Female
  Weight: 90.7 kg

DRUGS (1)
  1. NUVARING [Suspect]
     Active Substance: ETHINYL ESTRADIOL\ETONOGESTREL
     Indication: CONTRACEPTION
     Dosage: UNK
     Route: 067
     Dates: start: 201008, end: 201009

REACTIONS (10)
  - Pulmonary embolism [Unknown]
  - Pain [Unknown]
  - Pneumonia [Unknown]
  - Headache [Unknown]
  - Polycystic ovaries [Unknown]
  - Hyponatraemia [Unknown]
  - Maternal exposure before pregnancy [Unknown]
  - Headache [Unknown]
  - Pulmonary infarction [Unknown]
  - Dehydration [Unknown]

NARRATIVE: CASE EVENT DATE: 2010
